FAERS Safety Report 8815367 (Version 1)
Quarter: 2012Q4

REPORT INFORMATION
  Report Type: 
  Country: US (occurrence: US)
  Receive Date: 20120928
  Receipt Date: 20120928
  Transmission Date: 20130627
  Serious: Yes (Life-Threatening, Hospitalization, Other)
  Sender: FDA-Public Use
  Company Number: US-ASTRAZENECA-2012SE73924

PATIENT
  Age: 62 Year
  Sex: Male
  Weight: 90.7 kg

DRUGS (7)
  1. BRILINTA [Suspect]
     Indication: MYOCARDIAL INFARCTION
     Route: 048
     Dates: start: 20120716, end: 20120903
  2. BRILINTA [Suspect]
     Indication: MYOCARDIAL INFARCTION
     Route: 048
     Dates: start: 20120912, end: 20120914
  3. BRILINTA [Suspect]
     Indication: MYOCARDIAL INFARCTION
     Route: 048
     Dates: start: 20120924
  4. ATORVASTATIN [Concomitant]
     Indication: BLOOD CHOLESTEROL INCREASED
     Route: 048
     Dates: start: 201207
  5. CARVEDILOL [Concomitant]
     Indication: BLOOD PRESSURE ABNORMAL
     Route: 048
     Dates: start: 201207
  6. LEVOTHYROXINE [Concomitant]
     Indication: HYPOTHYROIDISM
     Route: 048
     Dates: start: 201207
  7. ASPIRIN [Concomitant]
     Route: 048
     Dates: start: 201207

REACTIONS (6)
  - Gallbladder disorder [Unknown]
  - Platelet count decreased [Unknown]
  - Oedema peripheral [Unknown]
  - Oedema peripheral [Unknown]
  - Oedema peripheral [Unknown]
  - Haemorrhage [Unknown]
